FAERS Safety Report 6844323-5 (Version None)
Quarter: 2010Q2

REPORT INFORMATION
  Report Type: 
  Country: None (occurrence: None)
  Receive Date: 20100629
  Receipt Date: 20100401
  Transmission Date: 20101027
  Serious: No
  Sender: FDA-Public Use
  Company Number: US-WYE-H14394510

PATIENT
  Age: 63 Year
  Sex: Male
  Weight: 94.43 kg

DRUGS (1)
  1. PRISTIQ [Suspect]
     Dosage: 50 MG, FREQUENCY NOT SPECIFIED
     Dates: start: 20091014, end: 20100323

REACTIONS (2)
  - ABNORMAL BEHAVIOUR [None]
  - MANIA [None]
